FAERS Safety Report 19268899 (Version 1)
Quarter: 2021Q2

REPORT INFORMATION
  Report Type: Spontaneous
  Country: US (occurrence: US)
  Receive Date: 20210517
  Receipt Date: 20210517
  Transmission Date: 20210717
  Serious: No
  Sender: FDA-Public Use
  Company Number: None

PATIENT
  Age: 49 Year
  Sex: Female

DRUGS (6)
  1. VERZENIO [Suspect]
     Active Substance: ABEMACICLIB
     Indication: BREAST CANCER
     Route: 048
     Dates: start: 20210407, end: 20210517
  2. ONDANSETRON  MG [Concomitant]
     Dates: start: 20210225
  3. LETROZOLE 2.5 MG [Concomitant]
     Active Substance: LETROZOLE
     Dates: start: 20200609
  4. LISINOPRIL. [Concomitant]
     Active Substance: LISINOPRIL
     Dates: start: 20201127
  5. LORAZEPAM 1 MG [Concomitant]
     Active Substance: LORAZEPAM
     Dates: start: 20210210
  6. PERCOCET 5/325 MG [Concomitant]
     Dates: start: 20210210

REACTIONS (3)
  - Dyspepsia [None]
  - Vomiting [None]
  - Nausea [None]

NARRATIVE: CASE EVENT DATE: 20210407
